FAERS Safety Report 11685731 (Version 1)
Quarter: 2015Q4

REPORT INFORMATION
  Report Type: Spontaneous
  Country: JP (occurrence: JP)
  Receive Date: 20151030
  Receipt Date: 20151030
  Transmission Date: 20160304
  Serious: Yes (Death)
  Sender: FDA-Public Use
  Company Number: PHJP2015JP018640

PATIENT
  Age: 60 Year
  Sex: Male

DRUGS (1)
  1. DESFERAL [Suspect]
     Active Substance: DEFEROXAMINE MESYLATE
     Indication: IRON OVERLOAD
     Dosage: UNK
     Route: 030
     Dates: end: 20151024

REACTIONS (3)
  - Headache [Fatal]
  - Malaise [Unknown]
  - Liver disorder [Unknown]

NARRATIVE: CASE EVENT DATE: 20151024
